FAERS Safety Report 12183539 (Version 1)
Quarter: 2016Q1

REPORT INFORMATION
  Report Type: Spontaneous
  Country: US (occurrence: US)
  Receive Date: 20160316
  Receipt Date: 20160316
  Transmission Date: 20160526
  Serious: Yes (Other)
  Sender: FDA-Public Use
  Company Number: US-TEVA-643396ACC

PATIENT
  Sex: Female

DRUGS (1)
  1. PARAGARD T 380A [Suspect]
     Active Substance: COPPER
     Indication: CONTRACEPTION
     Dates: start: 200808

REACTIONS (4)
  - Embedded device [Not Recovered/Not Resolved]
  - Device breakage [Not Recovered/Not Resolved]
  - Live birth [Unknown]
  - Pregnancy on contraceptive [Unknown]
